FAERS Safety Report 7304801-1 (Version None)
Quarter: 2011Q1

REPORT INFORMATION
  Report Type: 
  Country: None (occurrence: None)
  Receive Date: 20110222
  Receipt Date: 20110218
  Transmission Date: 20110831
  Serious: No
  Sender: FDA-Public Use
  Company Number: US-PFIZER INC-2011036776

PATIENT
  Sex: Female

DRUGS (1)
  1. LYRICA [Suspect]
     Dosage: UNK
     Route: 048
     Dates: start: 20110217, end: 20110217

REACTIONS (5)
  - MUSCLE SPASMS [None]
  - HEADACHE [None]
  - OROPHARYNGEAL PAIN [None]
  - NASAL CONGESTION [None]
  - PAIN [None]
